FAERS Safety Report 5913368-1 (Version None)
Quarter: 2008Q4

REPORT INFORMATION
  Report Type: 
  Country: None (occurrence: None)
  Receive Date: 20081009
  Receipt Date: 20081001
  Transmission Date: 20090506
  Serious: Yes (Hospitalization, Disabling, Other)
  Sender: FDA-Public Use
  Company Number: PHHY2008AR23631

PATIENT
  Age: 86 Year
  Sex: Female

DRUGS (2)
  1. EXELON [Suspect]
     Indication: DEMENTIA ALZHEIMER'S TYPE
     Dosage: 5 CM
     Route: 062
  2. TAXAGON [Concomitant]

REACTIONS (3)
  - AGITATION [None]
  - FALL [None]
  - HIP FRACTURE [None]
